FAERS Safety Report 15603056 (Version 1)
Quarter: 2018Q4

REPORT INFORMATION
  Report Type: Spontaneous
  Country: CA (occurrence: CA)
  Receive Date: 20181109
  Receipt Date: 20181109
  Transmission Date: 20190205
  Serious: Yes (Other)
  Sender: FDA-Public Use
  Company Number: CA-009507513-1508CAN003078

PATIENT
  Sex: Male

DRUGS (3)
  1. TEMODAL [Suspect]
     Active Substance: TEMOZOLOMIDE
     Dosage: 365 MILLIGRAM, DAILY X 5 DAYS
     Route: 048
  2. TEMODAL [Suspect]
     Active Substance: TEMOZOLOMIDE
     Indication: ANAPLASTIC ASTROCYTOMA
     Dosage: 150-200 MG/M2, DAILY X 5 DAYS Q 28 DAYS
     Route: 048
     Dates: start: 201411, end: 20150731
  3. LOMUSTINE. [Suspect]
     Active Substance: LOMUSTINE
     Indication: ANAPLASTIC ASTROCYTOMA
     Dosage: UNK

REACTIONS (5)
  - Adverse reaction [Unknown]
  - Anaplastic astrocytoma [Not Recovered/Not Resolved]
  - Fatigue [Not Recovered/Not Resolved]
  - Drug ineffective [Unknown]
  - Urticaria [Unknown]

NARRATIVE: CASE EVENT DATE: 2015
